FAERS Safety Report 25247534 (Version 3)
Quarter: 2025Q2

REPORT INFORMATION
  Report Type: Spontaneous
  Country: ES (occurrence: ES)
  Receive Date: 20250428
  Receipt Date: 20250616
  Transmission Date: 20250717
  Serious: Yes (Other)
  Sender: ANI
  Company Number: ES-ANIPHARMA-2025-ES-000016

PATIENT
  Age: 40 Year
  Sex: Female

DRUGS (9)
  1. CANDESARTAN CILEXETIL [Suspect]
     Active Substance: CANDESARTAN CILEXETIL
     Indication: Migraine
     Route: 048
     Dates: start: 20220615, end: 20230109
  2. ALMOTRIPTAN [Suspect]
     Active Substance: ALMOTRIPTAN
     Route: 048
     Dates: start: 20200315, end: 20230313
  3. AJOVY [Suspect]
     Active Substance: FREMANEZUMAB-VFRM
     Route: 058
     Dates: start: 20221011, end: 20230109
  4. TRAZODONE HYDROCHLORIDE [Suspect]
     Active Substance: TRAZODONE HYDROCHLORIDE
     Route: 048
     Dates: start: 20220615, end: 20230313
  5. PAROXETINE [Suspect]
     Active Substance: PAROXETINE
     Route: 048
     Dates: start: 20200315, end: 20230313
  6. AMITRIPTYLINE [Suspect]
     Active Substance: AMITRIPTYLINE
     Route: 048
     Dates: start: 20200115, end: 20230313
  7. CLOPIDOGREL [Suspect]
     Active Substance: CLOPIDOGREL BISULFATE
     Route: 048
     Dates: start: 20190715, end: 20230310
  8. BOTULINUM TOXIN TYPE A [Suspect]
     Active Substance: BOTULINUM TOXIN TYPE A
     Route: 058
     Dates: start: 20211025, end: 20230109
  9. NIMODIPINE [Suspect]
     Active Substance: NIMODIPINE
     Route: 048
     Dates: start: 20120715, end: 20230310

REACTIONS (3)
  - Abortion missed [Unknown]
  - Off label use [Unknown]
  - Contraindicated product administered [Unknown]

NARRATIVE: CASE EVENT DATE: 20220615
